FAERS Safety Report 11782697 (Version 2)
Quarter: 2015Q4

REPORT INFORMATION
  Report Type: Spontaneous
  Country: DK (occurrence: DK)
  Receive Date: 20151127
  Receipt Date: 20151231
  Transmission Date: 20160305
  Serious: Yes (Hospitalization, Other)
  Sender: FDA-Public Use
  Company Number: DK-ROCHE-1668486

PATIENT
  Age: 71 Year
  Sex: Male

DRUGS (2)
  1. ESBRIET [Suspect]
     Active Substance: PIRFENIDONE
     Indication: PRODUCT USED FOR UNKNOWN INDICATION
     Route: 048
     Dates: start: 201302, end: 201312
  2. ESBRIET [Suspect]
     Active Substance: PIRFENIDONE
     Route: 048
     Dates: start: 201405

REACTIONS (4)
  - Visual field defect [Not Recovered/Not Resolved]
  - Thrombosis [Unknown]
  - Skin exfoliation [Unknown]
  - Cerebral infarction [Recovering/Resolving]

NARRATIVE: CASE EVENT DATE: 201312
